FAERS Safety Report 19687659 (Version 1)
Quarter: 2021Q3

REPORT INFORMATION
  Report Type: Report from Study
  Country: DE (occurrence: DE)
  Receive Date: 20210811
  Receipt Date: 20210811
  Transmission Date: 20211014
  Serious: Yes (Hospitalization, Other)
  Sender: FDA-Public Use
  Company Number: DE-TAKEDA-2021TUS049197

PATIENT
  Age: 52 Year
  Sex: Female
  Weight: 65 kg

DRUGS (7)
  1. NOVAMIN [Concomitant]
     Indication: ANALGESIC THERAPY
     Dosage: UNK, TID
     Dates: start: 20200923, end: 20201120
  2. VITAMIN D NOS [Concomitant]
     Active Substance: VITAMIN D NOS
     Indication: PROPHYLAXIS
     Dosage: 0.25 MILLIGRAM, QD
     Dates: start: 20200923, end: 20201120
  3. LEVOTHYROXINE. [Concomitant]
     Active Substance: LEVOTHYROXINE
     Indication: THYROID DISORDER
     Dosage: 125 MICROGRAM, QD
     Dates: start: 20200923, end: 20201120
  4. NEXIUM [Concomitant]
     Active Substance: ESOMEPRAZOLE MAGNESIUM
     Indication: ACID BASE BALANCE ABNORMAL
     Dosage: 40 MILLIGRAM, QD
     Dates: start: 20200923, end: 20201120
  5. OPTIFIBRE [Concomitant]
     Indication: MALNUTRITION
     Dosage: UNK UNK, TID
     Dates: start: 20200923, end: 20201120
  6. VEDOLIZUMAB [Suspect]
     Active Substance: VEDOLIZUMAB
     Indication: PRODUCT USED FOR UNKNOWN INDICATION
     Dosage: 108 MILLIGRAM
     Route: 058
     Dates: start: 20200916
  7. FENTANYL. [Concomitant]
     Active Substance: FENTANYL
     Indication: PAIN
     Dosage: UNK

REACTIONS (1)
  - Abscess intestinal [Recovered/Resolved]

NARRATIVE: CASE EVENT DATE: 20200923
